FAERS Safety Report 8189726-4 (Version None)
Quarter: 2012Q1

REPORT INFORMATION
  Report Type: 
  Country: None (occurrence: None)
  Receive Date: 20120221
  Receipt Date: 20111026
  Transmission Date: 20120608
  Serious: No
  Sender: FDA-Public Use
  Company Number: 1000023986

PATIENT
  Age: 43 Year
  Sex: Female
  Weight: 58.97 kg

DRUGS (5)
  1. LORTAB [Suspect]
     Indication: PAIN
     Dosage: 7.5/500 MG (1 IN 1 D)
  2. AMBIEN [Suspect]
     Indication: INSOMNIA
     Dosage: 10 MG (10 MG,1 IN 1 D),ORAL
     Route: 048
  3. VIIBRYD [Suspect]
     Indication: MAJOR DEPRESSION
     Dosage: 10 MG (10 MG,1 IN 1 D),ORAL
     Route: 048
     Dates: start: 20110901, end: 20110901
  4. VIIBRYD [Suspect]
     Indication: MAJOR DEPRESSION
     Dosage: 20 MG (20 MG, 1 IN 1 D),ORAL
     Route: 048
     Dates: start: 20110901, end: 20110909
  5. MELATONIN (MELATONIN) [Suspect]
     Indication: INSOMNIA
     Dosage: 2.5 MG OR 5 MG (1 IN 1 D)

REACTIONS (15)
  - DISSOCIATION [None]
  - PAIN [None]
  - MUSCLE TIGHTNESS [None]
  - NEURALGIA [None]
  - PRURITUS [None]
  - SWELLING [None]
  - MUSCLE TWITCHING [None]
  - DYSPNOEA [None]
  - ABDOMINAL DISTENSION [None]
  - HYPOAESTHESIA [None]
  - OEDEMA PERIPHERAL [None]
  - DYSARTHRIA [None]
  - THROAT TIGHTNESS [None]
  - MYALGIA [None]
  - FEELING ABNORMAL [None]
